FAERS Safety Report 6505561-4 (Version None)
Quarter: 2009Q4

REPORT INFORMATION
  Report Type: 
  Country: None (occurrence: None)
  Receive Date: 20091217
  Receipt Date: 20091217
  Transmission Date: 20100525
  Serious: Yes (Life-Threatening)
  Sender: FDA-Public Use
  Company Number: None

PATIENT
  Sex: Female
  Weight: 52.1637 kg

DRUGS (3)
  1. PROVENTIL-HFA [Suspect]
     Indication: ASTHMA
     Dosage: 2 PUFFS 4 X A DAY
  2. PROVENTIL-HFA [Suspect]
     Indication: INHALATION THERAPY
     Dosage: 2 PUFFS 4 X A DAY
  3. PROVENTIL-HFA [Suspect]
     Indication: OBSTRUCTIVE AIRWAYS DISORDER
     Dosage: 2 PUFFS 4 X A DAY

REACTIONS (1)
  - PRODUCT PACKAGING QUANTITY ISSUE [None]
